FAERS Safety Report 20507472 (Version 2)
Quarter: 2022Q3

REPORT INFORMATION
  Report Type: Report from Study
  Country: GH (occurrence: GH)
  Receive Date: 20220223
  Receipt Date: 20220805
  Transmission Date: 20221026
  Serious: Yes (Hospitalization)
  Sender: FDA-Public Use
  Company Number: GH-NOVARTISPH-NVSC2022GH040191

PATIENT
  Age: 62 Year
  Sex: Male

DRUGS (1)
  1. SACUBITRIL\VALSARTAN [Suspect]
     Active Substance: SACUBITRIL\VALSARTAN
     Indication: Cardiac failure
     Dosage: 100 MG, BID
     Route: 048

REACTIONS (2)
  - Malaria [Not Recovered/Not Resolved]
  - Pyrexia [Not Recovered/Not Resolved]
